FAERS Safety Report 6105438-2 (Version None)
Quarter: 2009Q1

REPORT INFORMATION
  Report Type: 
  Country: None (occurrence: None)
  Receive Date: 20090306
  Receipt Date: 20090227
  Transmission Date: 20090719
  Serious: Yes (Life-Threatening, Hospitalization, Other)
  Sender: FDA-Public Use
  Company Number: A0648618A

PATIENT
  Age: 55 Year
  Sex: Female
  Weight: 174.5 kg

DRUGS (8)
  1. AVANDIA [Suspect]
     Dosage: 4MG TWICE PER DAY
     Route: 048
     Dates: start: 20020701, end: 20070301
  2. GLUCOVANCE [Suspect]
  3. LISINOPRIL [Concomitant]
     Dosage: 10MG PER DAY
     Route: 048
  4. ASPIRIN [Concomitant]
     Dosage: 81MG PER DAY
  5. CELEXA [Concomitant]
     Dosage: 40MG PER DAY
  6. GABAPENTIN [Concomitant]
     Dosage: 600MG AT NIGHT
  7. METFORMIN [Concomitant]
  8. ASPIRIN [Concomitant]

REACTIONS (9)
  - BLOOD GLUCOSE DECREASED [None]
  - CARDIAC DISORDER [None]
  - CARDIAC FAILURE CONGESTIVE [None]
  - DYSPNOEA [None]
  - HYPOGLYCAEMIA [None]
  - HYPOXIA [None]
  - OEDEMA PERIPHERAL [None]
  - PULMONARY OEDEMA [None]
  - WEIGHT INCREASED [None]
